FAERS Safety Report 7595359-0 (Version None)
Quarter: 2011Q3

REPORT INFORMATION
  Report Type: 
  Country: None (occurrence: None)
  Receive Date: 20110707
  Receipt Date: 20110701
  Transmission Date: 20111222
  Serious: Yes (Other)
  Sender: FDA-Public Use
  Company Number: IT-PFIZER INC-2011148515

PATIENT
  Age: 30 Year
  Sex: Female

DRUGS (1)
  1. FELDENE [Suspect]
     Route: 030

REACTIONS (2)
  - INJECTION SITE ABSCESS [None]
  - EXPIRED DRUG ADMINISTERED [None]
